FAERS Safety Report 17020070 (Version 6)
Quarter: 2020Q2

REPORT INFORMATION
  Report Type: Spontaneous
  Country: US (occurrence: US)
  Receive Date: 20191112
  Receipt Date: 20200424
  Transmission Date: 20200713
  Serious: No
  Sender: FDA-Public Use
  Company Number: US-BRISTOL-MYERS SQUIBB COMPANY-BMS-2019-108702

PATIENT
  Sex: Female

DRUGS (1)
  1. ORENCIA [Suspect]
     Active Substance: ABATACEPT
     Indication: RHEUMATOID ARTHRITIS
     Dosage: 125 MILLIGRAM, QWK
     Route: 058
     Dates: start: 20190626

REACTIONS (9)
  - Cough [Unknown]
  - Hyperaesthesia teeth [Unknown]
  - Skin infection [Unknown]
  - Injection site swelling [Unknown]
  - Nerve compression [Unknown]
  - Tooth infection [Unknown]
  - Injection site mass [Unknown]
  - Inflammation [Unknown]
  - Respiratory tract congestion [Unknown]
